FAERS Safety Report 5381610-4 (Version None)
Quarter: 2007Q3

REPORT INFORMATION
  Report Type: 
  Country: None (occurrence: None)
  Receive Date: 20070709
  Receipt Date: 20070627
  Transmission Date: 20080115
  Serious: Yes (Disabling)
  Sender: FDA-Public Use
  Company Number: PHBS2007GB08970

PATIENT
  Age: 67 Year
  Sex: Male

DRUGS (9)
  1. STALEVO 100 [Suspect]
     Indication: PARKINSON'S DISEASE
     Dosage: 900 MG/D
     Route: 048
     Dates: start: 20060322
  2. MADOPAR DISPERSIBLE [Concomitant]
     Indication: PARKINSON'S DISEASE
     Dosage: 125 MG, 3-6 TIMES DAILY
     Route: 048
  3. TOLTERODINE TARTRATE [Concomitant]
     Indication: HYPERTONIC BLADDER
     Route: 048
     Dates: start: 20070501
  4. AMANTADINE HCL [Concomitant]
     Indication: PARKINSON'S DISEASE
     Dosage: 100 MG, BID
     Route: 048
     Dates: start: 20070119
  5. QUETIAPINE [Concomitant]
     Indication: HALLUCINATION
     Dosage: 100 MG/D
     Route: 048
     Dates: start: 20060315
  6. MOVICOL [Concomitant]
     Indication: CONSTIPATION
     Route: 065
     Dates: start: 20070503
  7. VENLAFAXINE HCL [Concomitant]
     Indication: DEPRESSION
     Dosage: 75 MG/D
     Route: 065
     Dates: start: 20060322
  8. SIMVASTATIN [Concomitant]
     Dosage: 40 MG/D
     Route: 065
  9. ATROPINE [Concomitant]
     Route: 065
     Dates: start: 20060623

REACTIONS (5)
  - DRUG INEFFECTIVE [None]
  - GENERAL PHYSICAL HEALTH DETERIORATION [None]
  - HYPERHIDROSIS [None]
  - IMMOBILE [None]
  - PAIN [None]
